FAERS Safety Report 13931464 (Version 1)
Quarter: 2017Q3

REPORT INFORMATION
  Report Type: Report from Study
  Country: CH (occurrence: CH)
  Receive Date: 20170903
  Receipt Date: 20170903
  Transmission Date: 20171127
  Serious: Yes (Death, Hospitalization, Other)
  Sender: FDA-Public Use
  Company Number: PHHY2017CH128012

PATIENT
  Sex: Male

DRUGS (1)
  1. ENTRESTO [Suspect]
     Active Substance: SACUBITRIL\VALSARTAN
     Indication: CARDIAC FAILURE
     Dosage: 200 MG, BID
     Route: 065

REACTIONS (17)
  - Cardiogenic shock [Unknown]
  - Acute kidney injury [Unknown]
  - Weight increased [Unknown]
  - General physical health deterioration [Unknown]
  - Hypotonia [Unknown]
  - Tachypnoea [Unknown]
  - Joint dislocation [Unknown]
  - Fall [Unknown]
  - Capillary nail refill test abnormal [Unknown]
  - Tachycardia [Unknown]
  - Hyperparathyroidism [Unknown]
  - Arthralgia [Unknown]
  - Peripheral arterial occlusive disease [Unknown]
  - Death [Fatal]
  - Femoral neck fracture [Unknown]
  - Oedema peripheral [Unknown]
  - Metabolic acidosis [Unknown]

NARRATIVE: CASE EVENT DATE: 20170721
